FAERS Safety Report 8605852-7 (Version None)
Quarter: 2012Q3

REPORT INFORMATION
  Report Type: 
  Country: None (occurrence: None)
  Receive Date: 20120820
  Receipt Date: 20120808
  Transmission Date: 20120928
  Serious: Yes (Congenital Anomaly)
  Sender: FDA-Public Use
  Company Number: US-GLAXOSMITHKLINE-A0990038A

PATIENT
  Sex: Male

DRUGS (2)
  1. PROZAC [Suspect]
  2. PAXIL [Suspect]
     Indication: DEPRESSION
     Route: 064
     Dates: end: 20050701

REACTIONS (2)
  - FOETAL EXPOSURE DURING PREGNANCY [None]
  - PLAGIOCEPHALY [None]
